FAERS Safety Report 23408862 (Version 3)
Quarter: 2024Q3

REPORT INFORMATION
  Report Type: Spontaneous
  Country: CA (occurrence: CA)
  Receive Date: 20240117
  Receipt Date: 20240912
  Transmission Date: 20241017
  Serious: Yes (Life-Threatening, Other)
  Sender: NOVARTIS
  Company Number: CA-002147023-NVSC2024CA009088

PATIENT
  Age: 36 Year
  Sex: Male

DRUGS (14)
  1. CYCLOSPORINE [Suspect]
     Active Substance: CYCLOSPORINE
     Indication: Thrombotic thrombocytopenic purpura
     Dosage: 300 MG, QD
     Route: 048
  2. CYCLOSPORINE [Suspect]
     Active Substance: CYCLOSPORINE
     Indication: Immunosuppressant drug therapy
     Dosage: UNK
     Route: 065
  3. BORTEZOMIB [Suspect]
     Active Substance: BORTEZOMIB
     Indication: Thrombotic thrombocytopenic purpura
     Dosage: 3.1 MG, CYCLIC
     Route: 042
  4. BORTEZOMIB [Suspect]
     Active Substance: BORTEZOMIB
     Indication: Thrombotic thrombocytopenic purpura
     Dosage: 3.1 MG, CYCLIC
     Route: 042
  5. METHYLPREDNISOLONE SODIUM SUCCINATE [Suspect]
     Active Substance: METHYLPREDNISOLONE SODIUM SUCCINATE
     Indication: Thrombotic thrombocytopenic purpura
     Dosage: 100 MG, BIW
     Route: 065
  6. METHYLPREDNISOLONE SODIUM SUCCINATE [Suspect]
     Active Substance: METHYLPREDNISOLONE SODIUM SUCCINATE
     Dosage: UNK, QD
     Route: 065
  7. ACETYLCYSTEINE [Suspect]
     Active Substance: ACETYLCYSTEINE
     Indication: Thrombotic thrombocytopenic purpura
     Dosage: 18 G, QD
     Route: 042
  8. CYCLOPHOSPHAMIDE [Suspect]
     Active Substance: CYCLOPHOSPHAMIDE
     Indication: Thrombotic thrombocytopenic purpura
     Dosage: 750 MG (TOTAL)
     Route: 042
  9. CYCLOPHOSPHAMIDE [Suspect]
     Active Substance: CYCLOPHOSPHAMIDE
     Dosage: 1250 MG (TOTAL)
     Route: 042
  10. RITUXIMAB [Suspect]
     Active Substance: RITUXIMAB
     Indication: Thrombotic thrombocytopenic purpura
     Dosage: 900 MG, QW
     Route: 042
  11. RITUXIMAB [Suspect]
     Active Substance: RITUXIMAB
     Indication: Immunosuppressant drug therapy
  12. RITUXIMAB [Suspect]
     Active Substance: RITUXIMAB
     Indication: Thrombotic thrombocytopenic purpura
     Dosage: UNK
     Route: 065
  13. RITUXIMAB [Suspect]
     Active Substance: RITUXIMAB
     Indication: Immunosuppressant drug therapy
  14. ACITRETIN [Concomitant]
     Active Substance: ACITRETIN
     Indication: Psoriasis
     Dosage: UNK
     Route: 065

REACTIONS (20)
  - Abdominal abscess [Unknown]
  - Brain oedema [Unknown]
  - Candida infection [Unknown]
  - Clostridium difficile infection [Unknown]
  - Enterococcal infection [Unknown]
  - Klebsiella infection [Unknown]
  - Empyema [Unknown]
  - Staphylococcal bacteraemia [Unknown]
  - Vascular device infection [Unknown]
  - Sepsis [Unknown]
  - Cerebrovascular accident [Unknown]
  - Device related infection [Unknown]
  - Device related sepsis [Unknown]
  - Intentional product misuse [Unknown]
  - Staphylococcal sepsis [Unknown]
  - Thrombotic thrombocytopenic purpura [Unknown]
  - Off label use [Unknown]
  - Drug ineffective [Unknown]
  - Treatment failure [Unknown]
  - Drug ineffective for unapproved indication [Unknown]
